FAERS Safety Report 18855866 (Version 9)
Quarter: 2023Q2

REPORT INFORMATION
  Report Type: Spontaneous
  Country: PT (occurrence: PT)
  Receive Date: 20210206
  Receipt Date: 20230623
  Transmission Date: 20230721
  Serious: Yes (Hospitalization, Other)
  Sender: FDA-Public Use
  Company Number: PT-BENE-LIT_PT_20210118_007

PATIENT
  Age: 53 Year
  Sex: Female

DRUGS (3)
  1. IBUPROFEN [Interacting]
     Active Substance: IBUPROFEN
     Indication: Arthralgia
     Dosage: 600 MILLIGRAM, 3 TIMES A DAY
     Route: 048
  2. LITHIUM [Interacting]
     Active Substance: LITHIUM
     Indication: Bipolar disorder
     Dosage: 400 MILLIGRAM, TWO TIMES A DAY
     Route: 048
  3. LITHIUM [Interacting]
     Active Substance: LITHIUM
     Indication: Arthralgia
     Dosage: 800 MILLIGRAM, ONCE A DAY
     Route: 048

REACTIONS (12)
  - Depressed level of consciousness [Unknown]
  - Consciousness fluctuating [Unknown]
  - Tremor [Unknown]
  - Dysarthria [Unknown]
  - Gait disturbance [Unknown]
  - Disorientation [Unknown]
  - Toxicity to various agents [Unknown]
  - Antipsychotic drug level above therapeutic [Recovered/Resolved]
  - Antipsychotic drug level increased [Recovered/Resolved]
  - Dyskinesia [Unknown]
  - Drug interaction [Recovered/Resolved]
  - Labelled drug-drug interaction medication error [Recovered/Resolved]
